FAERS Safety Report 16450275 (Version 3)
Quarter: 2019Q4

REPORT INFORMATION
  Report Type: Report from Study
  Country: JP (occurrence: JP)
  Receive Date: 20190619
  Receipt Date: 20191119
  Transmission Date: 20200122
  Serious: Yes (Life-Threatening, Other)
  Sender: FDA-Public Use
  Company Number: JP-TEVA-2019-JP-1041670

PATIENT
  Age: 28 Year
  Sex: Female
  Weight: 49 kg

DRUGS (2)
  1. RUPAFIN [Concomitant]
     Active Substance: RUPATADINE FUMARATE
     Dates: start: 20190405
  2. GLATIRAMER ACETATE. [Suspect]
     Active Substance: GLATIRAMER ACETATE
     Indication: RELAPSING-REMITTING MULTIPLE SCLEROSIS
     Dosage: 20 MILLIGRAM/MILLILITERS DAILY;
     Route: 065
     Dates: start: 20190318, end: 20190607

REACTIONS (3)
  - Injection site induration [Recovering/Resolving]
  - Injection site pain [Recovering/Resolving]
  - Anaphylactic reaction [Recovering/Resolving]

NARRATIVE: CASE EVENT DATE: 20190405
